FAERS Safety Report 5443249-1 (Version None)
Quarter: 2007Q3

REPORT INFORMATION
  Report Type: 
  Country: None (occurrence: None)
  Receive Date: 20070905
  Receipt Date: 20070829
  Transmission Date: 20080115
  Serious: Yes (Other)
  Sender: FDA-Public Use
  Company Number: HQWYE944430AUG07

PATIENT
  Sex: Female
  Weight: 81.72 kg

DRUGS (2)
  1. ADVIL LIQUI-GELS [Suspect]
     Indication: HEADACHE
     Dosage: 2 LIQUI-GELS AS NEEDED
     Route: 048
     Dates: end: 20070827
  2. ADVIL LIQUI-GELS [Suspect]
     Indication: BACK PAIN

REACTIONS (7)
  - HYPOAESTHESIA [None]
  - LIP SWELLING [None]
  - OEDEMA PERIPHERAL [None]
  - OXYGEN SATURATION DECREASED [None]
  - SWOLLEN TONGUE [None]
  - URTICARIA [None]
  - VISUAL DISTURBANCE [None]
